FAERS Safety Report 6741610-6 (Version None)
Quarter: 2010Q2

REPORT INFORMATION
  Report Type: 
  Country: None (occurrence: None)
  Receive Date: 20100524
  Receipt Date: 20100507
  Transmission Date: 20101027
  Serious: Yes (Hospitalization)
  Sender: FDA-Public Use
  Company Number: AUR-APL-2010-01321

PATIENT
  Age: 84 Year
  Sex: Female
  Weight: 95 kg

DRUGS (7)
  1. SIMVASTATIN [Suspect]
     Indication: HYPERCHOLESTEROLAEMIA
     Dosage: 40MG, DAILY, ORAL
     Route: 048
     Dates: start: 20060101, end: 20100320
  2. BISACODYL [Concomitant]
  3. LACTULOSE [Concomitant]
  4. HJERTEMAGNYL^DAK^ FILM-COATED TABLET [Concomitant]
  5. PARACETAMOL [Concomitant]
  6. TRAMADOL [Concomitant]
  7. FERROUS SULFATE PROLONGED-RELEASE TABLET [Concomitant]

REACTIONS (2)
  - DEMENTIA [None]
  - MYALGIA [None]
